FAERS Safety Report 18368337 (Version 1)
Quarter: 2020Q4

REPORT INFORMATION
  Report Type: Spontaneous
  Country: FI (occurrence: FI)
  Receive Date: 20201009
  Receipt Date: 20201009
  Transmission Date: 20210114
  Serious: Yes (Other)
  Sender: FDA-Public Use
  Company Number: FI-009507513-2009FIN002166

PATIENT
  Sex: Female

DRUGS (4)
  1. SPESICOR DOS [Suspect]
     Active Substance: METOPROLOL SUCCINATE
     Dosage: UNK
  2. COZAAR [Suspect]
     Active Substance: LOSARTAN POTASSIUM
     Indication: HYPERTENSION
     Dosage: UNK
     Dates: start: 20050119, end: 2012
  3. COZAAR [Suspect]
     Active Substance: LOSARTAN POTASSIUM
     Dosage: UNK
     Dates: start: 2020
  4. COZAAR COMP [Suspect]
     Active Substance: HYDROCHLOROTHIAZIDE\LOSARTAN POTASSIUM
     Dosage: UNK
     Dates: start: 2018, end: 2020

REACTIONS (15)
  - Dyspnoea [Not Recovered/Not Resolved]
  - Arrhythmia [Unknown]
  - Tinnitus [Not Recovered/Not Resolved]
  - Pruritus [Not Recovered/Not Resolved]
  - Cerebral infarction [Unknown]
  - Nightmare [Not Recovered/Not Resolved]
  - Epilepsy [Unknown]
  - Sleep disorder [Not Recovered/Not Resolved]
  - Somnolence [Not Recovered/Not Resolved]
  - Fatigue [Not Recovered/Not Resolved]
  - Thrombocytosis [Unknown]
  - Dry skin [Not Recovered/Not Resolved]
  - Cough [Not Recovered/Not Resolved]
  - Breast cancer [Unknown]
  - Cardiac disorder [Recovered/Resolved]

NARRATIVE: CASE EVENT DATE: 2008
